FAERS Safety Report 23887012 (Version 1)
Quarter: 2024Q2

REPORT INFORMATION
  Report Type: Spontaneous
  Country: SE (occurrence: SE)
  Receive Date: 20240523
  Receipt Date: 20240523
  Transmission Date: 20240715
  Serious: Yes (Death)
  Sender: FDA-Public Use
  Company Number: None

PATIENT
  Age: 79 Year
  Sex: Female
  Weight: 84 kg

DRUGS (2)
  1. RYBELSUS [Suspect]
     Active Substance: SEMAGLUTIDE
     Indication: Overweight
  2. RYBELSUS [Suspect]
     Active Substance: SEMAGLUTIDE
     Indication: Diabetes mellitus
     Dosage: 7 MG, QD(1X1)
     Route: 048

REACTIONS (3)
  - Aspiration [Fatal]
  - Cardiac arrest [Fatal]
  - Pancreatitis acute [Fatal]

NARRATIVE: CASE EVENT DATE: 20240501
